FAERS Safety Report 5603774-7 (Version None)
Quarter: 2008Q1

REPORT INFORMATION
  Report Type: 
  Country: None (occurrence: None)
  Receive Date: 20080122
  Receipt Date: 20080114
  Transmission Date: 20080703
  Serious: Yes (Hospitalization)
  Sender: FDA-Public Use
  Company Number: 2008AL000236

PATIENT
  Age: 65 Year
  Sex: Female

DRUGS (8)
  1. DILTIAZEM HYDROCHLORIDE [Suspect]
     Indication: ATRIAL FIBRILLATION
     Dosage: 120 MG;QD;PO
     Route: 048
     Dates: start: 20040101
  2. DILTIAZEM HYDROCHLORIDE [Suspect]
  3. INSULIN [Concomitant]
  4. PREDNISONE TAB [Concomitant]
  5. CALCIUM GLUCONATE [Concomitant]
  6. SOTALOL HYDROCHLORIDE [Concomitant]
  7. OMEGA 3 [Concomitant]
  8. SALICYLIC ACID [Concomitant]

REACTIONS (2)
  - ATRIAL FIBRILLATION [None]
  - PHARMACEUTICAL PRODUCT COMPLAINT [None]
